FAERS Safety Report 4588328-6 (Version None)
Quarter: 2005Q1

REPORT INFORMATION
  Report Type: 
  Country: None (occurrence: None)
  Receive Date: 20050215
  Receipt Date: 20050215
  Transmission Date: 20050727
  Serious: Yes (Hospitalization)
  Sender: FDA-Public Use
  Company Number: None

PATIENT
  Age: 63 Year
  Sex: Male
  Weight: 114.0797 kg

DRUGS (11)
  1. ETODOLAC [Suspect]
     Indication: PAIN
     Dosage: 400MG TID
     Dates: start: 20040701, end: 20050101
  2. BUPROPION HCL [Concomitant]
  3. CELEXA [Concomitant]
  4. COLCHICINE [Concomitant]
  5. FELODIPINE [Concomitant]
  6. FOLIC ACID [Concomitant]
  7. LASIX [Concomitant]
  8. LISINOPRIL [Concomitant]
  9. M.V.I. [Concomitant]
  10. THIAMINE [Concomitant]
  11. CYANOCOBALAMIN [Concomitant]

REACTIONS (9)
  - ABDOMINAL PAIN [None]
  - ABNORMAL FAECES [None]
  - DIVERTICULITIS INTESTINAL HAEMORRHAGIC [None]
  - DIZZINESS [None]
  - FAECES DISCOLOURED [None]
  - FREQUENT BOWEL MOVEMENTS [None]
  - HAEMORRHOIDS [None]
  - INFLAMMATION [None]
  - RECTAL HAEMORRHAGE [None]
